FAERS Safety Report 9858757 (Version 1)
Quarter: 2014Q1

REPORT INFORMATION
  Report Type: Spontaneous
  Country: US (occurrence: US)
  Receive Date: 20140131
  Receipt Date: 20140131
  Transmission Date: 20141002
  Serious: Yes (Other)
  Sender: FDA-Public Use
  Company Number: US-ELI_LILLY_AND_COMPANY-US201401008533

PATIENT
  Sex: Female

DRUGS (2)
  1. HUMULIN NPH [Suspect]
     Indication: GESTATIONAL DIABETES
     Dosage: UNK
     Route: 065
  2. PRENATAL VITAMINS                  /01549301/ [Concomitant]

REACTIONS (3)
  - Eyelid oedema [Recovered/Resolved]
  - Swelling face [Recovered/Resolved]
  - Maternal exposure during pregnancy [Recovered/Resolved]
